FAERS Safety Report 7081541-8 (Version None)
Quarter: 2010Q4

REPORT INFORMATION
  Report Type: 
  Country: None (occurrence: None)
  Receive Date: 20101103
  Receipt Date: 20101026
  Transmission Date: 20110411
  Serious: Yes (Other)
  Sender: FDA-Public Use
  Company Number: US-WATSON-2010-14120

PATIENT
  Sex: Female

DRUGS (1)
  1. MICROGESTIN FE (WATSON LABORATORIES) UNKNOWN STRENGTH [Suspect]
     Dosage: UNK
     Route: 048

REACTIONS (1)
  - MULTIPLE SCLEROSIS [None]
